FAERS Safety Report 5121633-3 (Version None)
Quarter: 2006Q4

REPORT INFORMATION
  Report Type: 
  Country: None (occurrence: None)
  Receive Date: 20061003
  Receipt Date: 20060927
  Transmission Date: 20070319
  Serious: Yes (Death)
  Sender: FDA-Public Use
  Company Number: ATWYE775125JUN06

PATIENT
  Age: 61 Year
  Sex: Male

DRUGS (3)
  1. VENLAFAXINE HYDROCHLORIDE [Suspect]
     Indication: BIPOLAR DISORDER
     Dosage: 50 MG 1X PER 1 DAY ORAL
     Route: 048
     Dates: start: 20010801, end: 20051101
  2. AMLODIPINE [Concomitant]
  3. TRAZODONE HCL [Concomitant]

REACTIONS (2)
  - CARDIAC ARREST [None]
  - VOMITING [None]
